FAERS Safety Report 19651159 (Version 1)
Quarter: 2021Q3

REPORT INFORMATION
  Report Type: Report from Study
  Country: US (occurrence: US)
  Receive Date: 20210802
  Receipt Date: 20210802
  Transmission Date: 20211014
  Serious: No
  Sender: FDA-Public Use
  Company Number: US-JNJFOC-20210743616

PATIENT
  Sex: Male

DRUGS (1)
  1. TREMFYA [Suspect]
     Active Substance: GUSELKUMAB
     Indication: PSORIASIS
     Route: 058

REACTIONS (5)
  - Device leakage [Unknown]
  - Accidental exposure to product [Unknown]
  - Drug ineffective [Unknown]
  - Incorrect dose administered [Unknown]
  - Psoriasis [Unknown]
